FAERS Safety Report 5381479-8 (Version None)
Quarter: 2007Q2

REPORT INFORMATION
  Report Type: 
  Country: None (occurrence: None)
  Receive Date: 20070629
  Receipt Date: 20060522
  Transmission Date: 20071010
  Serious: Yes (Other)
  Sender: FDA-Public Use
  Company Number: 2006058964

PATIENT
  Age: 62 Year
  Sex: 0

DRUGS (2)
  1. ZOLOFT [Suspect]
     Indication: DEPRESSION
     Dosage: 200 MG (1 IN 1 D), ORAL
     Route: 048
  2. SERZONE [Suspect]
     Indication: DEPRESSION
     Dosage: 200 MG (1 IN 1 D)

REACTIONS (4)
  - CONFUSIONAL STATE [None]
  - COORDINATION ABNORMAL [None]
  - MEMORY IMPAIRMENT [None]
  - SEROTONIN SYNDROME [None]
